FAERS Safety Report 4762499-0 (Version None)
Quarter: 2005Q3

REPORT INFORMATION
  Report Type: 
  Country: None (occurrence: None)
  Receive Date: 20050907
  Receipt Date: 20050830
  Transmission Date: 20060218
  Serious: Yes (Death)
  Sender: FDA-Public Use
  Company Number: 200517715GDDC

PATIENT
  Age: 23 Year
  Sex: Male

DRUGS (3)
  1. RIFAMPICIN [Suspect]
     Indication: LEPROSY
     Dosage: DOSE: UNK
     Dates: start: 19990901
  2. DAPSONE [Suspect]
     Indication: LEPROSY
     Dosage: DOSE: UNK
     Dates: start: 19990901
  3. CLOFAZIMINE [Suspect]
     Indication: LEPROSY
     Dosage: DOSE: UNK
     Dates: start: 19990901

REACTIONS (4)
  - APLASTIC ANAEMIA [None]
  - DRUG INTERACTION [None]
  - HAEMORRHAGE [None]
  - PANCYTOPENIA [None]
